FAERS Safety Report 9200890 (Version 3)
Quarter: 2014Q2

REPORT INFORMATION
  Report Type: Spontaneous
  Country: US (occurrence: US)
  Receive Date: 20130401
  Receipt Date: 20140401
  Transmission Date: 20141212
  Serious: Yes (Hospitalization)
  Sender: FDA-Public Use
  Company Number: US-BAYER-2013-039115

PATIENT
  Age: 37 Year
  Sex: Female
  Weight: 79 kg

DRUGS (7)
  1. MIRENA [Suspect]
     Indication: MENORRHAGIA
     Dosage: 20 MCG/24HR, CONT
     Route: 015
     Dates: start: 20091027, end: 20100302
  2. ATENOLOL [Concomitant]
     Indication: HYPERTENSION
     Dosage: 100 MG, UNK
     Dates: start: 2005
  3. RELPAX [Concomitant]
     Indication: MIGRAINE
     Dosage: UNK
     Dates: start: 2005
  4. WELLBUTRIN [Concomitant]
     Indication: DEPRESSION
     Dosage: 300 MG, UNK
     Dates: start: 2007
  5. TORADOL [Concomitant]
     Dosage: UNK
  6. ZOFRAN [Concomitant]
     Dosage: UNK
  7. MORPHINE [Concomitant]
     Dosage: UNK

REACTIONS (4)
  - Uterine perforation [None]
  - Pain [None]
  - Injury [None]
  - Emotional distress [None]
